FAERS Safety Report 7592245-7 (Version None)
Quarter: 2011Q2

REPORT INFORMATION
  Report Type: 
  Country: None (occurrence: None)
  Receive Date: 20110628
  Receipt Date: 20110622
  Transmission Date: 20111010
  Serious: Yes (Hospitalization)
  Sender: FDA-Public Use
  Company Number: 2011SP029434

PATIENT
  Age: 49 Year
  Sex: Female

DRUGS (5)
  1. SAPHRIS [Suspect]
     Indication: BIPOLAR I DISORDER
     Dosage: 5 MG; BID; SL; 10 MG; BID; SL
     Route: 060
     Dates: start: 20110605
  2. SAPHRIS [Suspect]
     Indication: BIPOLAR I DISORDER
     Dosage: 5 MG; BID; SL; 10 MG; BID; SL
     Route: 060
     Dates: end: 20110609
  3. DEPAKOTE [Concomitant]
  4. LITHIUM [Concomitant]
  5. ZYPREXA [Concomitant]

REACTIONS (4)
  - CONDITION AGGRAVATED [None]
  - DRUG INEFFECTIVE [None]
  - WHEELCHAIR USER [None]
  - MANIA [None]
